FAERS Safety Report 5721385-X (Version None)
Quarter: 2008Q2

REPORT INFORMATION
  Report Type: 
  Country: None (occurrence: None)
  Receive Date: 20080424
  Receipt Date: 20080417
  Transmission Date: 20081010
  Serious: Yes (Life-Threatening, Disabling, Other)
  Sender: FDA-Public Use
  Company Number: 2008JP001148

PATIENT
  Age: 7 Year
  Sex: Female
  Weight: 32.5 kg

DRUGS (7)
  1. PROGRAF [Suspect]
     Indication: CORD BLOOD TRANSPLANT THERAPY
     Dosage: 0.6 MG, CONTINUOUS, IV NOS
     Route: 042
     Dates: start: 20061211
  2. METHOTREXATE      (METHOTREXATE) INJECTION [Suspect]
     Indication: CORD BLOOD TRANSPLANT THERAPY
     Dosage: 10 MG, UID/QD, IV NOS
     Route: 042
     Dates: start: 20061213, end: 20061223
  3. BUSULFEX [Suspect]
     Indication: BONE MARROW CONDITIONING REGIMEN
     Dosage: 0.95 MG/KG, QID, IV NOS
     Route: 042
     Dates: start: 20061204, end: 20061207
  4. CYCLOPHOSPHAMIDE [Suspect]
     Indication: BONE MARROW CONDITIONING REGIMEN
     Dosage: 60 MG/KG, UID/QD, IV NOS
     Route: 042
     Dates: start: 20061209, end: 20061210
  5. LASTET       (ETOPOSIDE) INJECTION [Suspect]
     Indication: BONE MARROW CONDITIONING REGIMEN
     Dosage: 60 MG/KG, UID/QD, IV NOS
     Route: 042
     Dates: start: 20061208, end: 20061208
  6. FLUDARA [Suspect]
     Indication: BONE MARROW CONDITIONING REGIMEN
     Dosage: 25 MG/M2, UID/QD, IV NOS
     Route: 042
     Dates: start: 20070125, end: 20070129
  7. VORICONAZOLE         (VORICONAZOLE) [Concomitant]

REACTIONS (7)
  - ACUTE RESPIRATORY DISTRESS SYNDROME [None]
  - BRONCHOPULMONARY ASPERGILLOSIS [None]
  - CYSTITIS HAEMORRHAGIC [None]
  - STAPHYLOCOCCAL SEPSIS [None]
  - STREPTOCOCCAL SEPSIS [None]
  - TRANSPLANT REJECTION [None]
  - VENOOCCLUSIVE LIVER DISEASE [None]
